FAERS Safety Report 4394817-X (Version None)
Quarter: 2004Q3

REPORT INFORMATION
  Report Type: 
  Country: None (occurrence: None)
  Receive Date: 20040707
  Receipt Date: 20040624
  Transmission Date: 20050211
  Serious: Yes (Hospitalization, Other)
  Sender: FDA-Public Use
  Company Number: 2004042836

PATIENT
  Sex: Male

DRUGS (10)
  1. SINEQUAN [Suspect]
     Indication: MAJOR DEPRESSION
     Dosage: 200 MG (100 MG, 1 IN 1 D), ORAL
     Route: 048
  2. DOXEPIN HCL [Suspect]
     Indication: MAJOR DEPRESSION
     Dosage: 200 MG (100 MG, 1 IN 1 D), ORAL
     Route: 048
  3. KALETRA [Concomitant]
  4. LAMIVUDINE (LAMIVUDINE) [Concomitant]
  5. DIDANOSINE (DIDANOSINE) [Concomitant]
  6. ALL OTHER THERAPEUTIC PRODUCTS (ALL OTHER THERAPEUTIC PRODUCTS) [Concomitant]
  7. NICOTINIC ACID [Concomitant]
  8. CARBACHOL (CARBACHOL) [Concomitant]
  9. TESTOSTERONE [Concomitant]
  10. VITAMINS (VITAMINS) [Concomitant]

REACTIONS (10)
  - ANGER [None]
  - ANTIDEPRESSANT DRUG LEVEL DECREASED [None]
  - ANXIETY [None]
  - DISEASE RECURRENCE [None]
  - IMMUNE SYSTEM DISORDER [None]
  - MAJOR DEPRESSION [None]
  - PHARMACEUTICAL PRODUCT COMPLAINT [None]
  - STRESS SYMPTOMS [None]
  - SUICIDAL IDEATION [None]
  - TREATMENT NONCOMPLIANCE [None]
